FAERS Safety Report 21470984 (Version 1)
Quarter: 2022Q4

REPORT INFORMATION
  Report Type: Spontaneous
  Country: US (occurrence: US)
  Receive Date: 20221018
  Receipt Date: 20221018
  Transmission Date: 20230112
  Serious: Yes (Other)
  Sender: FDA-Public Use
  Company Number: US-JNJFOC-20221026386

PATIENT

DRUGS (1)
  1. BENADRYL ALLERGY EXTRA STRENGTH [Suspect]
     Active Substance: DIPHENHYDRAMINE HYDROCHLORIDE
     Indication: Product used for unknown indication
     Dosage: 24 EVERY NIGHT
     Route: 065

REACTIONS (1)
  - Drug abuse [Unknown]
